FAERS Safety Report 15469496 (Version 3)
Quarter: 2019Q1

REPORT INFORMATION
  Report Type: Spontaneous
  Country: US (occurrence: US)
  Receive Date: 20181005
  Receipt Date: 20190103
  Transmission Date: 20190417
  Serious: No
  Sender: FDA-Public Use
  Company Number: US-GILEAD-2018-0366656

PATIENT
  Age: 45 Year
  Sex: Female

DRUGS (2)
  1. EPCLUSA [Suspect]
     Active Substance: SOFOSBUVIR\VELPATASVIR
     Indication: CHRONIC HEPATITIS C
     Dosage: 1 DF, UNK
     Route: 048
     Dates: start: 201809, end: 20181221
  2. EPCLUSA [Suspect]
     Active Substance: SOFOSBUVIR\VELPATASVIR
     Dosage: 1 DF, UNK
     Route: 048
     Dates: start: 201809, end: 20181221

REACTIONS (8)
  - Vulvovaginal mycotic infection [Unknown]
  - Headache [Unknown]
  - Thinking abnormal [Unknown]
  - Intentional dose omission [Recovered/Resolved]
  - Bone pain [Unknown]
  - Abdominal distension [Unknown]
  - Abdominal pain [Unknown]
  - Musculoskeletal discomfort [Unknown]
